FAERS Safety Report 4754624-2 (Version None)
Quarter: 2005Q3

REPORT INFORMATION
  Report Type: 
  Country: None (occurrence: None)
  Receive Date: 20050829
  Receipt Date: 20050801
  Transmission Date: 20060218
  Serious: Yes (Death)
  Sender: FDA-Public Use
  Company Number: NL-GLAXOSMITHKLINE-B0389703A

PATIENT
  Sex: Male

DRUGS (3)
  1. LAMOTRIGINE [Suspect]
     Dosage: 100MG THREE TIMES PER DAY
     Route: 065
     Dates: start: 20050715
  2. PROMETHAZINE [Concomitant]
  3. PROPRANOLOL [Concomitant]

REACTIONS (1)
  - SUDDEN DEATH [None]
